FAERS Safety Report 6084658-X (Version None)
Quarter: 2009Q1

REPORT INFORMATION
  Report Type: 
  Country: None (occurrence: None)
  Receive Date: 20090219
  Receipt Date: 20090211
  Transmission Date: 20090719
  Serious: Yes (Hospitalization, Other)
  Sender: FDA-Public Use
  Company Number: FR-GILEAD-2009-0019841

PATIENT
  Sex: Male
  Weight: 80 kg

DRUGS (5)
  1. TRUVADA [Suspect]
     Indication: HIV INFECTION
     Route: 048
     Dates: start: 20070101, end: 20090101
  2. REYATAZ [Concomitant]
     Route: 048
     Dates: start: 20070101
  3. SOLIAN [Concomitant]
     Route: 048
     Dates: start: 20050101
  4. ZOLOFT [Concomitant]
     Indication: DEPRESSION
     Route: 048
     Dates: start: 20050101
  5. NORVIR [Concomitant]
     Route: 048
     Dates: start: 20070101

REACTIONS (2)
  - NEPHROLITHIASIS [None]
  - RENAL COLIC [None]
